FAERS Safety Report 7995586-4 (Version None)
Quarter: 2011Q4

REPORT INFORMATION
  Report Type: 
  Country: None (occurrence: None)
  Receive Date: 20111217
  Receipt Date: 20111217
  Transmission Date: 20120403
  Serious: Yes (Life-Threatening, Disabling)
  Sender: FDA-Public Use
  Company Number: None

PATIENT
  Sex: Female
  Weight: 90.7194 kg

DRUGS (1)
  1. DYSPORT 500 UNITS PER VIAL X 3 VIALS ISPEN INC [Suspect]
     Indication: BACK PAIN
     Dosage: 500 UNITS X 3 VIALS
     Dates: start: 20110822

REACTIONS (4)
  - EYE DISORDER [None]
  - FATIGUE [None]
  - DYSPNOEA [None]
  - ASTHENIA [None]
